FAERS Safety Report 9804790 (Version 1)
Quarter: 2014Q1

REPORT INFORMATION
  Report Type: Spontaneous
  Country: US (occurrence: US)
  Receive Date: 20140108
  Receipt Date: 20140108
  Transmission Date: 20141002
  Serious: No
  Sender: FDA-Public Use
  Company Number: US-BAXTER-2014BAX000310

PATIENT
  Sex: Male

DRUGS (1)
  1. VANCOMYCIN INJECTION, USP [Suspect]
     Indication: STAPHYLOCOCCAL INFECTION
     Route: 042
     Dates: start: 2012, end: 2012

REACTIONS (3)
  - Feeling abnormal [Recovered/Resolved]
  - Erythema [Recovered/Resolved]
  - Faecal incontinence [Recovered/Resolved]
